FAERS Safety Report 16515658 (Version 1)
Quarter: 2019Q3

REPORT INFORMATION
  Report Type: Spontaneous
  Country: US (occurrence: US)
  Receive Date: 20190702
  Receipt Date: 20190702
  Transmission Date: 20191004
  Serious: No
  Sender: FDA-Public Use
  Company Number: None

PATIENT
  Age: 71 Year
  Sex: Male
  Weight: 75.3 kg

DRUGS (1)
  1. GAZYVA [Suspect]
     Active Substance: OBINUTUZUMAB
     Indication: CHRONIC LYMPHOCYTIC LEUKAEMIA
     Route: 041
     Dates: start: 20190701

REACTIONS (11)
  - Feeling hot [None]
  - Abdominal discomfort [None]
  - Flushing [None]
  - Nausea [None]
  - Tremor [None]
  - Chest discomfort [None]
  - Chills [None]
  - Dyspnoea [None]
  - Respiratory distress [None]
  - Infusion related reaction [None]
  - Feeling cold [None]

NARRATIVE: CASE EVENT DATE: 20190701
